FAERS Safety Report 22344807 (Version 1)
Quarter: 2023Q2

REPORT INFORMATION
  Report Type: Report from Study
  Country: KR (occurrence: KR)
  Receive Date: 20230519
  Receipt Date: 20230519
  Transmission Date: 20230721
  Serious: Yes (Death)
  Sender: FDA-Public Use
  Company Number: KR-MYLANLABS-2023M1051421

PATIENT
  Age: 70 Year
  Sex: Male
  Weight: 70 kg

DRUGS (11)
  1. CELEBREX [Suspect]
     Active Substance: CELECOXIB
     Indication: Osteonecrosis
     Dosage: 1 DOSAGE FORM, BID (0.5 DAY)
     Route: 048
     Dates: start: 20170928, end: 20171011
  2. BISOPROLOL FUMARATE [Concomitant]
     Active Substance: BISOPROLOL FUMARATE
     Indication: Arrhythmia
     Dosage: 2.5 MILLIGRAM, QD
     Route: 048
     Dates: start: 20170816, end: 20171024
  3. MIRABEGRON [Concomitant]
     Active Substance: MIRABEGRON
     Indication: Prostate cancer
     Dosage: 50 MILLIGRAM, QD
     Route: 048
     Dates: start: 20170525, end: 20171024
  4. IMIPRAMINE HYDROCHLORIDE [Concomitant]
     Active Substance: IMIPRAMINE HYDROCHLORIDE
     Indication: Mixed anxiety and depressive disorder
     Dosage: 25 MILLIGRAM, QD
     Route: 048
     Dates: start: 20170629, end: 20171024
  5. TROSPIUM CHLORIDE [Concomitant]
     Active Substance: TROSPIUM CHLORIDE
     Indication: Prostate cancer
     Dosage: 20 MILLIGRAM, BID (0.5 DAY)
     Route: 048
     Dates: start: 20170921, end: 20171024
  6. DULOXETINE HYDROCHLORIDE [Concomitant]
     Active Substance: DULOXETINE HYDROCHLORIDE
     Indication: Mixed anxiety and depressive disorder
     Dosage: 30 MILLIGRAM, QW (1 WEEK)
     Route: 048
     Dates: start: 20170921, end: 20171024
  7. TADALAFIL [Concomitant]
     Active Substance: TADALAFIL
     Indication: Prostate cancer
     Dosage: 5 MILLIGRAM, QD
     Route: 048
     Dates: start: 20170921, end: 20171024
  8. PREDNISOLONE [Concomitant]
     Active Substance: PREDNISOLONE
     Indication: Prostate cancer
     Dosage: 5 MILLIGRAM, BID (0.5 DAY)
     Route: 048
     Dates: start: 20170321, end: 20171024
  9. LANSOPRAZOLE [Concomitant]
     Active Substance: LANSOPRAZOLE
     Indication: Gastritis
     Dosage: 15 MILLIGRAM, TID (0.33 DAY)
     Route: 048
     Dates: start: 20170925, end: 20170927
  10. FLUBENDAZOLE [Concomitant]
     Active Substance: FLUBENDAZOLE
     Indication: Osteonecrosis
     Dosage: 1 DOSAGE FORM, BID (0.5 DAY)
     Route: 048
     Dates: start: 20170925, end: 20170927
  11. HYDROMORPHONE HYDROCHLORIDE [Concomitant]
     Active Substance: HYDROMORPHONE HYDROCHLORIDE
     Dosage: 4 MILLIGRAM, QD
     Route: 048
     Dates: start: 20170928, end: 20171017

REACTIONS (2)
  - Cardiac arrest [Fatal]
  - Off label use [Unknown]

NARRATIVE: CASE EVENT DATE: 20170928
